FAERS Safety Report 7065909-1 (Version None)
Quarter: 2010Q4

REPORT INFORMATION
  Report Type: 
  Country: None (occurrence: None)
  Receive Date: 20101027
  Receipt Date: 20101019
  Transmission Date: 20110411
  Serious: Yes (Death)
  Sender: FDA-Public Use
  Company Number: DE-ABBOTT-10P-062-0681137-00

PATIENT
  Age: 69 Year
  Sex: Male

DRUGS (6)
  1. SIXANTONE [Suspect]
     Indication: PROSTATE CANCER
     Route: 058
     Dates: start: 20100414, end: 20100414
  2. BICALUTAMIDE [Concomitant]
     Indication: ANTIANDROGEN THERAPY
     Route: 048
  3. DOCETAXEL [Concomitant]
     Indication: CHEMOTHERAPY
     Route: 042
     Dates: start: 20100506
  4. BLOPRESS PLUS [Concomitant]
     Indication: PRODUCT USED FOR UNKNOWN INDICATION
     Route: 048
     Dates: start: 20070101
  5. BISOHEXAL [Concomitant]
     Indication: PRODUCT USED FOR UNKNOWN INDICATION
     Route: 048
     Dates: start: 20070101
  6. TENORMIN [Concomitant]
     Indication: PRODUCT USED FOR UNKNOWN INDICATION
     Route: 048
     Dates: start: 20070101

REACTIONS (3)
  - DEATH [None]
  - PAIN [None]
  - PLEURAL EFFUSION [None]
